FAERS Safety Report 8359584-3 (Version None)
Quarter: 2012Q2

REPORT INFORMATION
  Report Type: 
  Country: None (occurrence: None)
  Receive Date: 20120515
  Receipt Date: 20120511
  Transmission Date: 20120825
  Serious: No
  Sender: FDA-Public Use
  Company Number: US-BAYER-2012-046970

PATIENT
  Sex: Female

DRUGS (1)
  1. MIRENA [Suspect]
     Dosage: 20 ?G/D, CONT
     Route: 015
     Dates: start: 20111219, end: 20120126

REACTIONS (7)
  - LIBIDO DECREASED [None]
  - DEPRESSED MOOD [None]
  - BREAST TENDERNESS [None]
  - WEIGHT INCREASED [None]
  - ADVERSE DRUG REACTION [None]
  - ABDOMINAL DISTENSION [None]
  - RASH [None]
